FAERS Safety Report 25952636 (Version 1)
Quarter: 2025Q4

REPORT INFORMATION
  Report Type: Spontaneous
  Country: EU (occurrence: EU)
  Receive Date: 20251023
  Receipt Date: 20251023
  Transmission Date: 20260118
  Serious: Yes (Other)
  Sender: BRISTOL-MYERS SQUIBB COMPANY
  Company Number: EU-BRISTOL-MYERS SQUIBB COMPANY-2025-143575

PATIENT
  Age: 78 Year
  Sex: Male

DRUGS (1)
  1. OPDUALAG [Suspect]
     Active Substance: NIVOLUMAB\RELATLIMAB-RMBW
     Indication: Superficial spreading melanoma stage unspecified
     Dosage: 1ST CYCLE NIVOLUMAB + RELATLIMAB Q4W
     Dates: start: 202404

REACTIONS (4)
  - Atrioventricular block [Unknown]
  - Immune-mediated myositis [Recovering/Resolving]
  - Sinusitis [Unknown]
  - Hyperthyroidism [Unknown]

NARRATIVE: CASE EVENT DATE: 20240401
